FAERS Safety Report 7568338-7 (Version None)
Quarter: 2011Q2

REPORT INFORMATION
  Report Type: 
  Country: None (occurrence: None)
  Receive Date: 20110623
  Receipt Date: 20110418
  Transmission Date: 20111010
  Serious: Yes (Other)
  Sender: FDA-Public Use
  Company Number: A0923378A

PATIENT
  Age: 75 Year
  Sex: Female
  Weight: 52.3 kg

DRUGS (4)
  1. FLOVENT [Suspect]
     Indication: ASTHMA
     Dosage: 2PUFF TWICE PER DAY
     Route: 055
     Dates: start: 20110101
  2. QVAR 40 [Suspect]
     Indication: ASTHMA
     Dosage: 2PUFF TWICE PER DAY
     Route: 055
     Dates: start: 20110301, end: 20110405
  3. PROAIR HFA [Concomitant]
     Dosage: 2PUFF SIX TIMES PER DAY
     Route: 055
  4. LOSARTAN POTASSIUM [Concomitant]
     Dosage: 50MG PER DAY

REACTIONS (4)
  - ERYTHEMA [None]
  - EYE SWELLING [None]
  - URTICARIA [None]
  - HYPERSENSITIVITY [None]
